FAERS Safety Report 6240595-9 (Version None)
Quarter: 2009Q2

REPORT INFORMATION
  Report Type: 
  Country: None (occurrence: None)
  Receive Date: 20090623
  Receipt Date: 20081021
  Transmission Date: 20091009
  Serious: No
  Sender: FDA-Public Use
  Company Number: US-ASTRAZENECA-2008UW23459

PATIENT
  Sex: Female

DRUGS (3)
  1. PULMICORT FLEXHALER [Suspect]
     Indication: ASTHMA
     Dosage: 90 MCG, TWO PUFFS TWICE A DAY
     Route: 055
     Dates: start: 20080901, end: 20081021
  2. BENICAR [Concomitant]
  3. CLARITIN [Concomitant]

REACTIONS (2)
  - ASTHMA [None]
  - FEELING ABNORMAL [None]
